FAERS Safety Report 8949846 (Version 1)
Quarter: 2012Q4

REPORT INFORMATION
  Report Type: 
  Country: US (occurrence: US)
  Receive Date: 20121206
  Receipt Date: 20121206
  Transmission Date: 20130627
  Serious: No
  Sender: FDA-Public Use
  Company Number: US-VERTEX PHARMACEUTICALS INC.-2012-025422

PATIENT
  Age: 57 Year
  Sex: Male

DRUGS (3)
  1. INCIVEK [Suspect]
     Indication: HEPATITIS C
     Dosage: UNK
     Route: 048
     Dates: start: 201210
  2. PEGINTERFERON [Suspect]
     Indication: HEPATITIS C
     Dosage: UNK
     Dates: start: 201210
  3. RIBAVIRIN [Suspect]
     Indication: HEPATITIS C
     Dosage: UNK
     Dates: start: 201210

REACTIONS (7)
  - Tremor [Unknown]
  - Skin burning sensation [Unknown]
  - Abdominal pain upper [Unknown]
  - Burning sensation [Unknown]
  - Vomiting [Unknown]
  - Dysgeusia [Unknown]
  - Pruritus [Unknown]
